FAERS Safety Report 4835038-3 (Version None)
Quarter: 2005Q4

REPORT INFORMATION
  Report Type: 
  Country: None (occurrence: None)
  Receive Date: 20051122
  Receipt Date: 20051031
  Transmission Date: 20060501
  Serious: Yes (Other)
  Sender: FDA-Public Use
  Company Number: GB-ABBOTT-05P-167-0316373-00

PATIENT
  Sex: Female
  Weight: 30.418 kg

DRUGS (6)
  1. HUMIRA [Suspect]
     Indication: DRUG USE FOR UNKNOWN INDICATION
     Route: 058
     Dates: start: 20040517, end: 20051028
  2. MINOCYCLINE [Concomitant]
     Indication: DRUG USE FOR UNKNOWN INDICATION
  3. FLURBIPROFEN [Concomitant]
     Indication: DRUG USE FOR UNKNOWN INDICATION
  4. HYDROXYQUINOLINE [Concomitant]
     Indication: DRUG USE FOR UNKNOWN INDICATION
  5. NORETHIESTERONE [Concomitant]
     Indication: DRUG USE FOR UNKNOWN INDICATION
  6. NORETHIESTERONE [Concomitant]

REACTIONS (5)
  - NEUTROPHIL COUNT DECREASED [None]
  - NEUTROPHIL COUNT INCREASED [None]
  - SKIN ULCER [None]
  - WHITE BLOOD CELL COUNT DECREASED [None]
  - WHITE BLOOD CELL COUNT INCREASED [None]
